FAERS Safety Report 9478876 (Version 1)
Quarter: 2013Q3

REPORT INFORMATION
  Report Type: Spontaneous
  Country: IT (occurrence: IT)
  Receive Date: 20130827
  Receipt Date: 20130827
  Transmission Date: 20140515
  Serious: Yes (Other)
  Sender: FDA-Public Use
  Company Number: IT-TEVA-427520ISR

PATIENT
  Age: 29 Year
  Sex: Male

DRUGS (1)
  1. PANTOPRAZOLO SODICO [Suspect]
     Indication: GASTROOESOPHAGEAL REFLUX DISEASE
     Dosage: 1 DOSAGE FORMS DAILY;
     Route: 048
     Dates: start: 20130622, end: 20130624

REACTIONS (2)
  - Amaurosis [Recovering/Resolving]
  - Dizziness [Recovering/Resolving]
